FAERS Safety Report 9067652 (Version 2)
Quarter: 2013Q2

REPORT INFORMATION
  Report Type: Spontaneous
  Country: US (occurrence: US)
  Receive Date: 20130128
  Receipt Date: 20130516
  Transmission Date: 20140414
  Serious: Yes (Other)
  Sender: FDA-Public Use
  Company Number: US-PFIZER INC-2013034159

PATIENT
  Age: 62 Year
  Sex: Male

DRUGS (2)
  1. LIPITOR [Suspect]
     Dosage: UNK
  2. ZETIA [Concomitant]
     Dosage: UNK

REACTIONS (2)
  - Myositis [Unknown]
  - Immune-mediated necrotising myopathy [Not Recovered/Not Resolved]
